FAERS Safety Report 20013336 (Version 2)
Quarter: 2021Q4

REPORT INFORMATION
  Report Type: Spontaneous
  Country: IN (occurrence: IN)
  Receive Date: 20211029
  Receipt Date: 20211124
  Transmission Date: 20220303
  Serious: Yes (Other)
  Sender: FDA-Public Use
  Company Number: IN-PFIZER INC-202101059275

PATIENT
  Age: 65 Year
  Sex: Female

DRUGS (2)
  1. PALBOCICLIB [Suspect]
     Active Substance: PALBOCICLIB
     Dosage: 125 MG, 1X/DAY
     Route: 048
     Dates: start: 20210707, end: 20210724
  2. PALBOCICLIB [Suspect]
     Active Substance: PALBOCICLIB
     Dosage: 125 MG, 1X/DAY
     Route: 048
     Dates: end: 202110

REACTIONS (8)
  - White blood cell count decreased [Unknown]
  - Gait inability [Unknown]
  - Blood sodium decreased [Unknown]
  - Culture urine positive [Unknown]
  - Therapeutic response unexpected [Unknown]
  - Blood glucose decreased [Unknown]
  - Full blood count abnormal [Unknown]
  - Urinary tract infection [Unknown]
